FAERS Safety Report 6793744-8 (Version None)
Quarter: 2010Q2

REPORT INFORMATION
  Report Type: 
  Country: None (occurrence: None)
  Receive Date: 20100624
  Receipt Date: 20090313
  Transmission Date: 20101027
  Serious: No
  Sender: FDA-Public Use
  Company Number: US-PFIZER INC-2009155240

PATIENT
  Sex: Female
  Weight: 68 kg

DRUGS (4)
  1. XALATAN [Suspect]
     Indication: INTRAOCULAR PRESSURE INCREASED
     Dosage: UNK
     Dates: start: 20081001
  2. NORVASC [Concomitant]
     Indication: ANGINA PECTORIS
     Dosage: UNK
     Route: 048
  3. IMDUR [Concomitant]
     Indication: ANGINA PECTORIS
     Dosage: 60 MG, UNK
     Route: 048
  4. ACETYLSALICYLIC ACID [Concomitant]
     Dosage: UNK
     Route: 048

REACTIONS (1)
  - VITREOUS DEGENERATION [None]
